FAERS Safety Report 6332588-8 (Version None)
Quarter: 2009Q3

REPORT INFORMATION
  Report Type: 
  Country: None (occurrence: None)
  Receive Date: 20090828
  Receipt Date: 20090820
  Transmission Date: 20100115
  Serious: Yes (Other)
  Sender: FDA-Public Use
  Company Number: US-JNJFOC-20061003495

PATIENT
  Sex: Female

DRUGS (4)
  1. RISPERDAL [Suspect]
     Indication: SCHIZOPHRENIA
  2. SEROQUEL [Suspect]
     Indication: DEPRESSION
     Route: 065
  3. DEPO-PROVERA [Suspect]
     Indication: CONTRACEPTION
     Route: 065
  4. ZYPREXA [Concomitant]
     Indication: AFFECTIVE DISORDER

REACTIONS (4)
  - AMENORRHOEA [None]
  - BLOOD PROLACTIN ABNORMAL [None]
  - DIABETES MELLITUS [None]
  - SCHIZOPHRENIA [None]
